FAERS Safety Report 7242533-9 (Version None)
Quarter: 2010Q4

REPORT INFORMATION
  Report Type: 
  Country: None (occurrence: None)
  Receive Date: 20101130
  Receipt Date: 20091019
  Transmission Date: 20110411
  Serious: Yes (Hospitalization)
  Sender: FDA-Public Use
  Company Number: 2009-200090-NL

PATIENT
  Age: 19 Year
  Sex: Female
  Weight: 57.6068 kg

DRUGS (2)
  1. NUVARING [Suspect]
     Indication: CONTRACEPTION
     Dosage: 1 DF
     Dates: start: 20040801, end: 20041230
  2. ZOLOFT [Concomitant]

REACTIONS (3)
  - ANXIETY [None]
  - DEEP VEIN THROMBOSIS [None]
  - DEPRESSION [None]
